FAERS Safety Report 4873688-9 (Version None)
Quarter: 2006Q1

REPORT INFORMATION
  Report Type: 
  Country: None (occurrence: None)
  Receive Date: 20060104
  Receipt Date: 20060104
  Transmission Date: 20060701
  Serious: Yes (Life-Threatening)
  Sender: FDA-Public Use
  Company Number: None

PATIENT
  Age: 36 Year
  Sex: Female

DRUGS (1)
  1. MORPHINE [Suspect]
     Dosage: X1
     Dates: start: 20041019, end: 20041019

REACTIONS (1)
  - ANAPHYLACTIC REACTION [None]
